FAERS Safety Report 6497968-9 (Version None)
Quarter: 2009Q4

REPORT INFORMATION
  Report Type: 
  Country: None (occurrence: None)
  Receive Date: 20091215
  Receipt Date: 20091207
  Transmission Date: 20100525
  Serious: Yes (Hospitalization)
  Sender: FDA-Public Use
  Company Number: US-ROCHE-674243

PATIENT
  Sex: Male
  Weight: 77.1 kg

DRUGS (9)
  1. BEVACIZUMAB [Suspect]
     Route: 042
  2. SUTENT [Suspect]
     Indication: GLIOBLASTOMA
     Route: 048
     Dates: start: 20090501
  3. IRINOTECAN HCL [Suspect]
     Dosage: DRUGNAME: IRINOTECAN HCL SOLUTION FOR INFUSION
     Route: 042
  4. NEXIUM [Concomitant]
  5. BISOPROLOL [Concomitant]
  6. AMLODIPINE BESYLATE [Concomitant]
  7. ZETIA [Concomitant]
  8. MINOCYCLINE [Concomitant]
  9. LEVETIRACETAM [Concomitant]

REACTIONS (2)
  - RENAL FAILURE [None]
  - ULCER HAEMORRHAGE [None]
